FAERS Safety Report 21641544 (Version 1)
Quarter: 2022Q4

REPORT INFORMATION
  Report Type: Report from Study
  Country: US (occurrence: US)
  Receive Date: 20221125
  Receipt Date: 20221125
  Transmission Date: 20230113
  Serious: No
  Sender: FDA-Public Use
  Company Number: US-ABBVIE-4212742

PATIENT
  Age: 57 Year
  Sex: Male

DRUGS (1)
  1. IMBRUVICA [Suspect]
     Active Substance: IBRUTINIB
     Indication: Chronic lymphocytic leukaemia
     Route: 048
     Dates: end: 20221119

REACTIONS (5)
  - Blood creatinine increased [Unknown]
  - Blood pressure increased [Unknown]
  - White blood cell count decreased [Unknown]
  - Renal impairment [Unknown]
  - Polydipsia [Unknown]

NARRATIVE: CASE EVENT DATE: 20221101
